FAERS Safety Report 11051633 (Version 1)
Quarter: 2015Q2

REPORT INFORMATION
  Report Type: Report from Study
  Country: US (occurrence: US)
  Receive Date: 20150421
  Receipt Date: 20150421
  Transmission Date: 20150821
  Serious: Yes (Other)
  Sender: FDA-Public Use
  Company Number: US-SA-2014SA142699

PATIENT
  Age: 33 Year
  Sex: Female

DRUGS (9)
  1. ZYRTEC [Suspect]
     Active Substance: CETIRIZINE HYDROCHLORIDE
     Route: 065
  2. SINGULAIR [Suspect]
     Active Substance: MONTELUKAST SODIUM
     Route: 065
  3. IBUPROFEN. [Concomitant]
     Active Substance: IBUPROFEN
  4. AUBAGIO [Suspect]
     Active Substance: TERIFLUNOMIDE
     Indication: MULTIPLE SCLEROSIS
     Route: 048
     Dates: start: 20140929
  5. FIORICET [Concomitant]
     Active Substance: ACETAMINOPHEN\BUTALBITAL\CAFFEINE
  6. TOPAMAX [Concomitant]
     Active Substance: TOPIRAMATE
  7. TRAZODONE [Concomitant]
     Active Substance: TRAZODONE HYDROCHLORIDE
  8. TYLENOL [Concomitant]
     Active Substance: ACETAMINOPHEN
  9. ZOLOFT [Concomitant]
     Active Substance: SERTRALINE HYDROCHLORIDE

REACTIONS (6)
  - Cough [Unknown]
  - Abdominal pain [Unknown]
  - Sinus congestion [Unknown]
  - Headache [Unknown]
  - Diarrhoea [Unknown]
  - Nuclear magnetic resonance imaging abnormal [Unknown]
